FAERS Safety Report 9688445 (Version 1)
Quarter: 2013Q4

REPORT INFORMATION
  Report Type: Spontaneous
  Country: US (occurrence: None)
  Receive Date: 20131112
  Receipt Date: 20131112
  Transmission Date: 20140711
  Serious: Yes (Hospitalization)
  Sender: FDA-Public Use
  Company Number: 1275105

PATIENT
  Sex: Female

DRUGS (1)
  1. MONISTAT [Suspect]
     Dosage: INSERTED VAGINALLY X3
     Dates: start: 20130822, end: 20130824

REACTIONS (1)
  - Application site vesicles [None]
